FAERS Safety Report 18998921 (Version 4)
Quarter: 2021Q3

REPORT INFORMATION
  Report Type: Report from Study
  Country: US (occurrence: US)
  Receive Date: 20210311
  Receipt Date: 20210731
  Transmission Date: 20211014
  Serious: Yes (Hospitalization, Other)
  Sender: FDA-Public Use
  Company Number: US-TAKEDA-2021TUS013799

PATIENT
  Sex: Female
  Weight: 36.74 kg

DRUGS (45)
  1. LIDOCAINE. [Concomitant]
     Active Substance: LIDOCAINE
     Route: 065
  2. NORMAL SALINE [Concomitant]
     Active Substance: SODIUM CHLORIDE
     Route: 065
  3. APRISO [Concomitant]
     Active Substance: MESALAMINE
     Route: 065
  4. POTASSIUM [Concomitant]
     Active Substance: POTASSIUM
     Route: 065
  5. TRAMADOL. [Concomitant]
     Active Substance: TRAMADOL
     Route: 065
  6. CELECOXIB. [Concomitant]
     Active Substance: CELECOXIB
  7. KETOCONAZOLE. [Concomitant]
     Active Substance: KETOCONAZOLE
  8. CURCUMIN [Concomitant]
     Active Substance: CURCUMIN
  9. PROGESTERONE. [Concomitant]
     Active Substance: PROGESTERONE
  10. LEVOTHYROXINE. [Concomitant]
     Active Substance: LEVOTHYROXINE
  11. ACETAMINOPHEN. [Concomitant]
     Active Substance: ACETAMINOPHEN
     Route: 065
  12. EPINEPHRINE. [Concomitant]
     Active Substance: EPINEPHRINE
     Route: 065
  13. ZOLPIDEM [Concomitant]
     Active Substance: ZOLPIDEM TARTRATE
  14. HUMAN IMMUNOGLOBULIN; HYALURONIDASE [Suspect]
     Active Substance: HUMAN IMMUNOGLOBULIN G\HYALURONIDASE RECOMBINANT HUMAN
     Indication: PULMONARY ARTERIAL HYPERTENSION
  15. ENTERAGAM [Concomitant]
     Active Substance: DIETARY SUPPLEMENT
     Route: 065
  16. DIPHENOXYLATE/ATROPINE [Concomitant]
     Active Substance: ATROPINE\DIPHENOXYLATE
     Route: 065
  17. PANTOPRAZOLE [Concomitant]
     Active Substance: PANTOPRAZOLE
     Route: 065
  18. HYDROXYZINE [Concomitant]
     Active Substance: HYDROXYZINE HYDROCHLORIDE
  19. TRIAMCINOLONE [Concomitant]
     Active Substance: TRIAMCINOLONE
  20. CLOBETASOL [Concomitant]
     Active Substance: CLOBETASOL
  21. EYE DROPS [NAPHAZOLINE HYDROCHLORIDE] [Concomitant]
  22. VITAMIN D3 [Concomitant]
     Active Substance: CHOLECALCIFEROL
  23. PHAZYME [SIMETICONE] [Concomitant]
  24. BENTYL [Concomitant]
     Active Substance: DICYCLOMINE HYDROCHLORIDE
     Route: 065
  25. DURAGESIC [Concomitant]
     Active Substance: FENTANYL
     Route: 065
  26. HYDROCHLOROTHIAZIDE. [Concomitant]
     Active Substance: HYDROCHLOROTHIAZIDE
  27. CREON [Concomitant]
     Active Substance: PANCRELIPASE AMYLASE\PANCRELIPASE LIPASE\PANCRELIPASE PROTEASE
  28. SIMVASTATIN. [Concomitant]
     Active Substance: SIMVASTATIN
  29. LYRICA [Concomitant]
     Active Substance: PREGABALIN
  30. CHLORDIAZEPOXIDE HYDROCHLORIDE;CLIDINIUM [Concomitant]
     Route: 065
  31. PROBIOTIC [BIFIDOBACTERIUM LACTIS] [Concomitant]
     Active Substance: BIFIDOBACTERIUM ANIMALIS LACTIS
  32. VOLTAREN ACTI [Concomitant]
     Active Substance: DICLOFENAC POTASSIUM
  33. DIPHENHYDRAMINE. [Concomitant]
     Active Substance: DIPHENHYDRAMINE
     Route: 065
  34. LIDOCAINE/PRILOCAINE [Concomitant]
     Active Substance: LIDOCAINE\PRILOCAINE
     Route: 065
  35. DIAZEPAM. [Concomitant]
     Active Substance: DIAZEPAM
  36. LOPERAMIDE [Concomitant]
     Active Substance: LOPERAMIDE
  37. ESTRADIOL. [Concomitant]
     Active Substance: ESTRADIOL
  38. VANOS [Concomitant]
     Active Substance: FLUOCINONIDE
  39. PATADAY [Concomitant]
     Active Substance: OLOPATADINE HYDROCHLORIDE
  40. BUDESONIDE. [Concomitant]
     Active Substance: BUDESONIDE
     Route: 065
  41. DIFICID [Concomitant]
     Active Substance: FIDAXOMICIN
     Route: 065
  42. RED YEAST RICE WITH PLANT STEROLS [Concomitant]
     Active Substance: DIETARY SUPPLEMENT
  43. HUMAN IMMUNOGLOBULIN; HYALURONIDASE [Suspect]
     Active Substance: HUMAN IMMUNOGLOBULIN G\HYALURONIDASE RECOMBINANT HUMAN
     Indication: IMMUNODEFICIENCY COMMON VARIABLE
     Dosage: 20 GRAM, Q4WEEKS
     Route: 058
     Dates: start: 20160411
  44. ASACOL HD [Concomitant]
     Active Substance: MESALAMINE
     Route: 065
  45. LOMOTIL [LOPERAMIDE HYDROCHLORIDE] [Concomitant]
     Active Substance: LOPERAMIDE HYDROCHLORIDE
     Dosage: UNK
     Route: 065

REACTIONS (6)
  - Fatigue [Unknown]
  - Inappropriate schedule of product administration [Unknown]
  - Pulmonary contusion [Unknown]
  - Therapy interrupted [Unknown]
  - Cough [Unknown]
  - Dyspnoea [Unknown]
